FAERS Safety Report 11794019 (Version 7)
Quarter: 2021Q4

REPORT INFORMATION
  Report Type: Other
  Country: CA (occurrence: CA)
  Receive Date: 20151202
  Receipt Date: 20211019
  Transmission Date: 20220303
  Serious: Yes (Other)
  Sender: FDA-Public Use
  Company Number: CA-ROCHE-1671646

PATIENT
  Age: 68 Year
  Sex: Female

DRUGS (5)
  1. XOLAIR [Suspect]
     Active Substance: OMALIZUMAB
     Indication: Asthma
     Route: 058
     Dates: start: 20060301
  2. XOLAIR [Suspect]
     Active Substance: OMALIZUMAB
     Route: 058
     Dates: start: 20090622
  3. XOLAIR [Suspect]
     Active Substance: OMALIZUMAB
     Route: 058
  4. SYMBICORT [Concomitant]
     Active Substance: BUDESONIDE\FORMOTEROL FUMARATE DIHYDRATE
     Indication: Product used for unknown indication
     Dosage: 1 DF, BID
     Route: 065
  5. SINGULAIR [Concomitant]
     Active Substance: MONTELUKAST SODIUM
     Indication: Product used for unknown indication
     Dosage: 10 MG, UNK
     Route: 048

REACTIONS (14)
  - Nasopharyngitis [Unknown]
  - Forced vital capacity decreased [Unknown]
  - Influenza [Unknown]
  - Pneumonia [Unknown]
  - Dyspnoea [Unknown]
  - Viral infection [Unknown]
  - Asthma [Not Recovered/Not Resolved]
  - Forced expiratory volume decreased [Recovering/Resolving]
  - Diarrhoea [Recovering/Resolving]
  - Nausea [Recovering/Resolving]
  - Middle insomnia [Unknown]
  - Gait inability [Unknown]
  - Drug ineffective [Unknown]
  - Cardiac murmur [Unknown]

NARRATIVE: CASE EVENT DATE: 20110201
